FAERS Safety Report 6653371-X (Version None)
Quarter: 2010Q1

REPORT INFORMATION
  Report Type: 
  Country: None (occurrence: None)
  Receive Date: 20100326
  Receipt Date: 20100316
  Transmission Date: 20100710
  Serious: Yes (Hospitalization)
  Sender: FDA-Public Use
  Company Number: PHHY2009MX53218

PATIENT
  Age: 66 Year
  Sex: Female

DRUGS (2)
  1. ACLASTA [Suspect]
     Indication: OSTEOPOROSIS
     Dosage: 1 INJECTION PER YEAR
     Dates: start: 20090910
  2. ENBREL [Concomitant]
     Indication: OSTEOPOROSIS
     Dosage: UNK
     Dates: start: 20090915

REACTIONS (5)
  - AORTIC OCCLUSION [None]
  - POSTOPERATIVE WOUND INFECTION [None]
  - RASH [None]
  - STEVENS-JOHNSON SYNDROME [None]
  - SURGERY [None]
